FAERS Safety Report 6766185-7 (Version None)
Quarter: 2010Q2

REPORT INFORMATION
  Report Type: 
  Country: None (occurrence: None)
  Receive Date: 20100611
  Receipt Date: 20100602
  Transmission Date: 20101027
  Serious: Yes (Other)
  Sender: FDA-Public Use
  Company Number: JP-PFIZER INC-2010070018

PATIENT
  Sex: Female

DRUGS (1)
  1. AZULFIDINE [Suspect]
     Dosage: 500 MG, 1X/DAY
     Route: 048
     Dates: start: 20060701

REACTIONS (7)
  - NAUSEA [None]
  - PLATELET COUNT DECREASED [None]
  - PYREXIA [None]
  - SCLEROMALACIA [None]
  - SYSTEMIC LUPUS ERYTHEMATOSUS [None]
  - VASCULITIS [None]
  - WEIGHT DECREASED [None]
